FAERS Safety Report 23940637 (Version 1)
Quarter: 2024Q2

REPORT INFORMATION
  Report Type: Spontaneous
  Country: US (occurrence: US)
  Receive Date: 20240605
  Receipt Date: 20240605
  Transmission Date: 20240716
  Serious: No
  Sender: FDA-Public Use
  Company Number: US-ALKEM LABORATORIES LIMITED-IN-ALKEM-2024-06158

PATIENT
  Age: 72 Year
  Sex: Male

DRUGS (6)
  1. VANCOMYCIN [Suspect]
     Active Substance: VANCOMYCIN
     Indication: Cellulitis
     Dosage: 1 GRAM, BID (Q 12 HOURS)
     Route: 065
  2. VANCOMYCIN [Suspect]
     Active Substance: VANCOMYCIN
     Indication: Joint injury
  3. CLINDAMYCIN [Concomitant]
     Active Substance: CLINDAMYCIN
     Indication: Cellulitis
     Dosage: UNK
     Route: 065
  4. CLINDAMYCIN [Concomitant]
     Active Substance: CLINDAMYCIN
     Indication: Joint injury
  5. SULFAMETHOXAZOLE\TRIMETHOPRIM [Concomitant]
     Active Substance: SULFAMETHOXAZOLE\TRIMETHOPRIM
     Indication: Cellulitis
     Dosage: UNK
     Route: 065
  6. SULFAMETHOXAZOLE\TRIMETHOPRIM [Concomitant]
     Active Substance: SULFAMETHOXAZOLE\TRIMETHOPRIM
     Indication: Joint injury

REACTIONS (1)
  - Rash [Unknown]
